FAERS Safety Report 5626036-0 (Version None)
Quarter: 2008Q1

REPORT INFORMATION
  Report Type: 
  Country: None (occurrence: None)
  Receive Date: 20080214
  Receipt Date: 20080207
  Transmission Date: 20080703
  Serious: Yes (Other)
  Sender: FDA-Public Use
  Company Number: PHBS2008BR01521

PATIENT
  Age: 81 Year
  Sex: Male
  Weight: 94 kg

DRUGS (2)
  1. DIOVAN HCT [Suspect]
     Indication: HYPERTENSION
     Dosage: VALS 160 / HCT 25 MG/DAY
     Route: 048
     Dates: start: 20060701
  2. LEXOTAN [Concomitant]
     Dosage: 1.5 MG, PRN
     Route: 048
     Dates: start: 19980101

REACTIONS (8)
  - BACK PAIN [None]
  - COUGH [None]
  - DIARRHOEA [None]
  - DIZZINESS [None]
  - FATIGUE [None]
  - PROSTATE CANCER [None]
  - RADIOTHERAPY [None]
  - TINNITUS [None]
